FAERS Safety Report 15989130 (Version 1)
Quarter: 2019Q1

REPORT INFORMATION
  Report Type: Spontaneous
  Country: GB (occurrence: GB)
  Receive Date: 20190221
  Receipt Date: 20190221
  Transmission Date: 20190418
  Serious: Yes (Other)
  Sender: FDA-Public Use
  Company Number: GB-ACCORD-108006

PATIENT
  Age: 67 Year
  Sex: Male
  Weight: 113 kg

DRUGS (15)
  1. COLCHICINE. [Concomitant]
     Active Substance: COLCHICINE
     Indication: GOUT
     Dosage: FOR ACUTE ATTACKS OF GOUT TAKE ONE TABLET THREE...
     Dates: start: 20180514, end: 20180524
  2. LANSOPRAZOLE. [Concomitant]
     Active Substance: LANSOPRAZOLE
     Dates: start: 20160907, end: 20180511
  3. ALGINATES [Concomitant]
     Dates: start: 20160907, end: 20180511
  4. ENALAPRIL [Concomitant]
     Active Substance: ENALAPRIL
     Dates: start: 20160907
  5. FLUCLOXACILLIN [Concomitant]
     Active Substance: FLUCLOXACILLIN
     Dates: start: 20180420, end: 20180427
  6. ATORVASTATIN/ATORVASTATIN CALCIUM [Suspect]
     Active Substance: ATORVASTATIN CALCIUM
     Indication: PRODUCT USED FOR UNKNOWN INDICATION
     Dates: start: 20180301
  7. TAMSULOSIN [Concomitant]
     Active Substance: TAMSULOSIN
     Dates: start: 20160907, end: 20180511
  8. FENBID [Concomitant]
     Active Substance: IBUPROFEN
     Dosage: APPLY TO THE AFFECTED AREA(S) UP TO THREE TIMES...
     Dates: start: 20180420, end: 20180518
  9. SILDENAFIL. [Concomitant]
     Active Substance: SILDENAFIL
     Dosage: TO BE TAKEN 1 HOUR BEFORE SEXUAL ACTIVITY
     Dates: start: 20170111
  10. SODIUM CHLORIDE. [Concomitant]
     Active Substance: SODIUM CHLORIDE
     Dates: start: 20180424, end: 20180425
  11. WARFARIN [Concomitant]
     Active Substance: WARFARIN
     Dosage: AS DIRECTED BY YELLOW BOOK
     Dates: start: 20160907
  12. BISOPROLOL [Concomitant]
     Active Substance: BISOPROLOL
     Dates: start: 20180621
  13. PARACETAMOL [Concomitant]
     Active Substance: ACETAMINOPHEN
     Dates: start: 20180424, end: 20180425
  14. COCODAMOL [Concomitant]
     Active Substance: ACETAMINOPHEN\CODEINE PHOSPHATE
     Dosage: 1-2 TABLET
     Dates: start: 20180424, end: 20180518
  15. IBUPROFEN. [Concomitant]
     Active Substance: IBUPROFEN
     Dosage: 1 APPLICATION
     Dates: start: 20180424, end: 20180425

REACTIONS (1)
  - Muscle haemorrhage [Recovering/Resolving]

NARRATIVE: CASE EVENT DATE: 20180425
